FAERS Safety Report 10637901 (Version 1)
Quarter: 2014Q4

REPORT INFORMATION
  Report Type: Spontaneous
  Country: FR (occurrence: FR)
  Receive Date: 20141208
  Receipt Date: 20141208
  Transmission Date: 20150529
  Serious: Yes (Other)
  Sender: FDA-Public Use
  Company Number: FR-PFIZER INC-2014331717

PATIENT
  Age: 67 Year
  Sex: Female

DRUGS (5)
  1. SOLUPRED [Suspect]
     Active Substance: PREDNISOLONE
     Dosage: 40 MG IN THE MORNING FOR 4 TO 6 DAYS POST-CHEMOTHERAPY CYCLE
     Route: 048
     Dates: start: 20140808
  2. ETOPOSIDE MYLAN [Suspect]
     Active Substance: ETOPOSIDE
     Dosage: 200 MG DAILY THREE TIMES PER CYCLE (DAY 1 TO DAY 3)
     Route: 041
     Dates: start: 20140717
  3. CISPLATIN MYLAN [Suspect]
     Active Substance: CISPLATIN
     Dosage: 150 MG, CYCLIC
     Route: 041
     Dates: start: 20140717, end: 20140807
  4. SOLU-MEDROL [Suspect]
     Active Substance: METHYLPREDNISOLONE SODIUM SUCCINATE
     Indication: PREMEDICATION
     Dosage: 80 MG DAILY (3 DAYS PER CYCLE)
     Route: 042
     Dates: start: 20140807, end: 20140910
  5. CARBOPLATIN HOSPIRA [Suspect]
     Active Substance: CARBOPLATIN
     Dosage: 430 MG, CYCLIC
     Route: 041
     Dates: start: 20140910

REACTIONS (2)
  - Osteonecrosis [Not Recovered/Not Resolved]
  - Acute kidney injury [Unknown]

NARRATIVE: CASE EVENT DATE: 20140926
